FAERS Safety Report 5312688-1 (Version None)
Quarter: 2007Q2

REPORT INFORMATION
  Report Type: 
  Country: None (occurrence: None)
  Receive Date: 20070430
  Receipt Date: 20070424
  Transmission Date: 20071010
  Serious: Yes (Hospitalization)
  Sender: FDA-Public Use
  Company Number: 2007AP01878

PATIENT
  Age: 26003 Day
  Sex: Male
  Weight: 101.6 kg

DRUGS (14)
  1. NEXIUM [Suspect]
     Indication: GASTRITIS
     Route: 042
     Dates: start: 20070323, end: 20070329
  2. NEXIUM [Suspect]
     Indication: ANAEMIA
     Route: 042
     Dates: start: 20070323, end: 20070329
  3. AVANDIA [Concomitant]
     Indication: DIABETES MELLITUS
  4. AVANDIA [Concomitant]
     Dates: start: 20070403
  5. DIAFORMIN [Concomitant]
     Indication: DIABETES MELLITUS
  6. DIAFORMIN [Concomitant]
     Dates: start: 20070329
  7. DIMERIL [Concomitant]
     Indication: DIABETES MELLITUS
  8. ATACAND HCT [Concomitant]
     Route: 048
  9. SERETIDE [Concomitant]
     Route: 048
  10. SPIRIVA [Concomitant]
     Route: 048
  11. LASIX [Concomitant]
     Route: 048
  12. TITRACE [Concomitant]
     Route: 048
  13. ZANIDIP [Concomitant]
     Route: 048
  14. VENTOLIN [Concomitant]
     Route: 048

REACTIONS (1)
  - HYPOGLYCAEMIA [None]
